FAERS Safety Report 5235880-3 (Version None)
Quarter: 2007Q1

REPORT INFORMATION
  Report Type: 
  Country: None (occurrence: None)
  Receive Date: 20061208
  Receipt Date: 20051222
  Transmission Date: 20070707
  Serious: Yes (Other)
  Sender: FDA-Public Use
  Company Number: 2005UW19333

PATIENT
  Age: 44 Year
  Sex: Female
  Weight: 79.378 kg

DRUGS (3)
  1. CRESTOR [Suspect]
     Indication: BLOOD CHOLESTEROL INCREASED
     Dosage: 5 MG PO
     Route: 048
  2. BLOOD PRESSURE MEDICATION [Concomitant]
  3. DEPRESSION MEDICATION [Concomitant]

REACTIONS (3)
  - BONE PAIN [None]
  - DIZZINESS [None]
  - EAR PAIN [None]
